FAERS Safety Report 13135754 (Version 3)
Quarter: 2019Q3

REPORT INFORMATION
  Report Type: Report from Study
  Country: JP (occurrence: JP)
  Receive Date: 20170120
  Receipt Date: 20190813
  Transmission Date: 20191004
  Serious: No
  Sender: FDA-Public Use
  Company Number: JP-BIOGEN-2016BI00301167

PATIENT
  Sex: Male
  Weight: 72 kg

DRUGS (7)
  1. EFMOROCTOCOG ALFA [Suspect]
     Active Substance: EFMOROCTOCOG ALFA
     Dosage: 2000 IU, BIW
     Route: 042
     Dates: start: 20160528, end: 20161208
  2. LIVACT [ISOLEUCINE;LEUCINE;VALINE] [Concomitant]
     Indication: HEPATIC CIRRHOSIS
     Route: 048
     Dates: start: 20151113
  3. NEXIUM [Concomitant]
     Active Substance: ESOMEPRAZOLE MAGNESIUM
     Indication: GASTRIC MUCOSAL LESION
     Route: 048
     Dates: start: 20151113
  4. URSO [Concomitant]
     Active Substance: URSODIOL
     Indication: HEPATIC CIRRHOSIS
     Route: 048
     Dates: start: 20151217
  5. EFMOROCTOCOG ALFA [Suspect]
     Active Substance: EFMOROCTOCOG ALFA
     Indication: FACTOR VIII DEFICIENCY
     Dosage: 1500 IU, BIW, MORNING
     Route: 042
     Dates: start: 20151029
  6. KOGENATE [Concomitant]
     Active Substance: ANTIHEMOPHILIC FACTOR, HUMAN RECOMBINANT
     Indication: HIGH FREQUENCY ABLATION
     Dosage: UNK
     Route: 042
     Dates: start: 20161027, end: 20161107
  7. MAGMITT [Concomitant]
     Active Substance: MAGNESIUM OXIDE
     Indication: GASTRIC MUCOSAL LESION
     Route: 048
     Dates: start: 20151113

REACTIONS (1)
  - No adverse event [Unknown]
